FAERS Safety Report 10391908 (Version 2)
Quarter: 2014Q3

REPORT INFORMATION
  Report Type: Report from Study
  Country: US (occurrence: US)
  Receive Date: 20140819
  Receipt Date: 20140828
  Transmission Date: 20150326
  Serious: Yes (Other)
  Sender: FDA-Public Use
  Company Number: PHEH2014US016038

PATIENT
  Age: 71 Year
  Sex: Male
  Weight: 98.87 kg

DRUGS (1)
  1. EXJADE [Suspect]
     Active Substance: DEFERASIROX
     Indication: MYELODYSPLASTIC SYNDROME
     Dosage: 2000 MG, QD
     Route: 048
     Dates: start: 20140607

REACTIONS (3)
  - Accident [Unknown]
  - Abdominal discomfort [Unknown]
  - Bronchitis [Unknown]

NARRATIVE: CASE EVENT DATE: 20140810
